FAERS Safety Report 4314655-3 (Version None)
Quarter: 2004Q1

REPORT INFORMATION
  Report Type: 
  Country: None (occurrence: None)
  Receive Date: 20040308
  Receipt Date: 20040226
  Transmission Date: 20041129
  Serious: Yes (Hospitalization, Other)
  Sender: FDA-Public Use
  Company Number: 2003116348

PATIENT
  Age: 81 Year
  Sex: Female
  Weight: 43.4 kg

DRUGS (10)
  1. CARDENALIN (DOXAZOSIN) [Suspect]
     Indication: HYPERTENSION
     Dosage: 2 MG (DAILY), ORAL
     Route: 048
     Dates: start: 20031021, end: 20031001
  2. SULFASALAZINE [Suspect]
     Indication: RHEUMATOID ARTHRITIS
     Dosage: 500 MG (DAILY), ORAL
     Route: 048
     Dates: start: 20031011, end: 20031024
  3. CALCIUM CHANNEL BLOCKERS [Concomitant]
  4. DIURETICS [Concomitant]
  5. PREDNISOLONE [Concomitant]
  6. SODIUM AUROTHIOMALATE (SODIUM AUROTHIOMALATE) [Concomitant]
  7. CILNIDIPINE (CILNIDIPINE) [Concomitant]
  8. AMLODIPINE BESYLATE [Concomitant]
  9. ACETYLSALICYLIC ACID SRT [Concomitant]
  10. NICORANDIL (NICORANDIL) [Concomitant]

REACTIONS (9)
  - BLOOD ALKALINE PHOSPHATASE INCREASED [None]
  - C-REACTIVE PROTEIN INCREASED [None]
  - CHOLESTASIS [None]
  - DRUG EFFECT DECREASED [None]
  - GAMMA-GLUTAMYLTRANSFERASE INCREASED [None]
  - INFECTION [None]
  - OEDEMA [None]
  - PLEURAL EFFUSION [None]
  - PYREXIA [None]
